FAERS Safety Report 7917113-X (Version None)
Quarter: 2011Q4

REPORT INFORMATION
  Report Type: 
  Country: None (occurrence: None)
  Receive Date: 20111031
  Receipt Date: 20111012
  Transmission Date: 20120403
  Serious: Yes (Life-Threatening)
  Sender: FDA-Public Use
  Company Number: OMX-2010-00149

PATIENT
  Age: 45 Year
  Sex: Female

DRUGS (8)
  1. APPLICATOR [Suspect]
  2. THIOPENTAL SODIUM [Concomitant]
  3. ISOFLURANE [Concomitant]
  4. BUPIVACAINE HCL [Concomitant]
  5. FENTANYL [Concomitant]
  6. PRESSURE REGULATOR(SPRAY (NOT INHALATION)) [Suspect]
     Dosage: (2-3 BARS)
  7. ROCURONIUM BROMIDE [Concomitant]
  8. FIBRIN SEALANT NOS [Suspect]
     Indication: POST PROCEDURAL HAEMORRHAGE

REACTIONS (7)
  - BRADYCARDIA [None]
  - AIR EMBOLISM [None]
  - HYPOTENSION [None]
  - CARDIAC FAILURE [None]
  - INTRACARDIAC THROMBUS [None]
  - WRONG TECHNIQUE IN DRUG USAGE PROCESS [None]
  - DRUG ADMINISTRATION ERROR [None]
